FAERS Safety Report 21340289 (Version 1)
Quarter: 2022Q3

REPORT INFORMATION
  Report Type: Spontaneous
  Country: CZ (occurrence: CZ)
  Receive Date: 20220916
  Receipt Date: 20220916
  Transmission Date: 20221027
  Serious: Yes (Hospitalization, Other)
  Sender: FDA-Public Use
  Company Number: CZ-CELLTRION INC.-2022CZ010136

PATIENT

DRUGS (7)
  1. INFLIXIMAB [Suspect]
     Active Substance: INFLIXIMAB
     Indication: Ankylosing spondylitis
     Dosage: 5 MG/KG, EVERY TWO MONTHS
     Route: 042
     Dates: start: 20220126
  2. INFLIXIMAB [Suspect]
     Active Substance: INFLIXIMAB
     Dosage: REDUCED DOSE OF 2.5 MG INLIXIMAB / KG BODY WEIGHT
     Route: 042
     Dates: start: 20220427
  3. INFLIXIMAB [Suspect]
     Active Substance: INFLIXIMAB
     Dosage: 2.5 MG/KG OF WEIGHT IN INFUSION (IN F 1/1 500 ML)
     Route: 042
     Dates: start: 20220622
  4. GLIPIZIDE [Concomitant]
     Active Substance: GLIPIZIDE
     Dosage: 5MG 1/2-1/2-1/2 TBL
  5. METFORMIN [Concomitant]
     Active Substance: METFORMIN HYDROCHLORIDE
     Dosage: 850 MG1-0-1 TBL
  6. ROSUVASTATIN CALCIUM [Concomitant]
     Active Substance: ROSUVASTATIN CALCIUM
     Dosage: 20MG 0-0-1 TBL
  7. ASPIRIN [Concomitant]
     Active Substance: ASPIRIN
     Dosage: 100 MG 0-1-0 TBL

REACTIONS (3)
  - COVID-19 pneumonia [Recovered/Resolved]
  - Therapy interrupted [Unknown]
  - Intentional product use issue [Unknown]

NARRATIVE: CASE EVENT DATE: 20220307
